FAERS Safety Report 17762442 (Version 2)
Quarter: 2020Q2

REPORT INFORMATION
  Report Type: Spontaneous
  Country: US (occurrence: US)
  Receive Date: 20200508
  Receipt Date: 20200604
  Transmission Date: 20200714
  Serious: No
  Sender: FDA-Public Use
  Company Number: US-PFIZER INC-2018196697

PATIENT
  Age: 65 Year
  Sex: Male
  Weight: 142 kg

DRUGS (2)
  1. LYRICA [Suspect]
     Active Substance: PREGABALIN
     Indication: MUSCLE SPASMS
     Dosage: 150 MG, 3X/DAY
     Route: 048
  2. LYRICA [Suspect]
     Active Substance: PREGABALIN
     Indication: ELECTRIC SHOCK

REACTIONS (6)
  - Off label use [Unknown]
  - Insomnia [Unknown]
  - Product use in unapproved indication [Unknown]
  - Hypoaesthesia [Unknown]
  - Pain in extremity [Unknown]
  - Paraesthesia [Unknown]
